FAERS Safety Report 21357342 (Version 4)
Quarter: 2023Q1

REPORT INFORMATION
  Report Type: Spontaneous
  Country: US (occurrence: US)
  Receive Date: 20220921
  Receipt Date: 20230304
  Transmission Date: 20230417
  Serious: No
  Sender: FDA-Public Use
  Company Number: US-GLAXOSMITHKLINE-US2022AMR131934

PATIENT
  Age: 48 Year
  Sex: Female

DRUGS (2)
  1. ZEJULA [Suspect]
     Active Substance: NIRAPARIB
     Indication: Ovarian cancer
     Dosage: 200 MG, QD
     Dates: start: 20220822, end: 20220925
  2. ZEJULA [Suspect]
     Active Substance: NIRAPARIB
     Dosage: 100 MG, QD
     Dates: start: 202210, end: 20230223

REACTIONS (5)
  - Headache [Recovering/Resolving]
  - Fatigue [Recovering/Resolving]
  - Hot flush [Not Recovered/Not Resolved]
  - Platelet count decreased [Recovered/Resolved]
  - Decreased activity [Unknown]

NARRATIVE: CASE EVENT DATE: 20220925
